FAERS Safety Report 17001848 (Version 3)
Quarter: 2019Q4

REPORT INFORMATION
  Report Type: Spontaneous
  Country: JP (occurrence: JP)
  Receive Date: 20191106
  Receipt Date: 20191230
  Transmission Date: 20200122
  Serious: Yes (Hospitalization)
  Sender: FDA-Public Use
  Company Number: JP-EISAI MEDICAL RESEARCH-EC-2019-063181

PATIENT
  Age: 83 Year
  Sex: Male

DRUGS (4)
  1. LENVIMA [Suspect]
     Active Substance: LENVATINIB
     Route: 048
     Dates: start: 201910, end: 20191028
  2. LENVIMA [Suspect]
     Active Substance: LENVATINIB
     Route: 048
     Dates: start: 20191107, end: 2019
  3. LENVIMA [Suspect]
     Active Substance: LENVATINIB
     Indication: HEPATOCELLULAR CARCINOMA
     Route: 048
     Dates: start: 20190813, end: 201910
  4. LENVIMA [Suspect]
     Active Substance: LENVATINIB
     Dosage: ALTERNATE DAY DOSING OF 4 MG AND 8 MG
     Route: 048
     Dates: start: 2019

REACTIONS (5)
  - Diarrhoea [Recovered/Resolved]
  - Taste disorder [Recovering/Resolving]
  - Proteinuria [Not Recovered/Not Resolved]
  - Herpes zoster [Recovered/Resolved]
  - Fatigue [Recovering/Resolving]

NARRATIVE: CASE EVENT DATE: 201909
